FAERS Safety Report 10356912 (Version 1)
Quarter: 2014Q3

REPORT INFORMATION
  Report Type: Spontaneous
  Country: US (occurrence: None)
  Receive Date: 20140730
  Receipt Date: 20140730
  Transmission Date: 20150326
  Serious: Yes (Life-Threatening, Hospitalization)
  Sender: FDA-Public Use
  Company Number: None

PATIENT
  Age: 74 Year
  Sex: Male
  Weight: 115.67 kg

DRUGS (4)
  1. XARELTO [Suspect]
     Active Substance: RIVAROXABAN
     Indication: ATRIAL FIBRILLATION
     Dosage: 1 PILL QHS/BEDTIME ORAL
     Route: 048
     Dates: start: 20130629, end: 20140729
  2. XARELTO [Suspect]
     Active Substance: RIVAROXABAN
     Indication: THROMBOSIS PROPHYLAXIS
     Dosage: 1 PILL QHS/BEDTIME ORAL
     Route: 048
     Dates: start: 20130629, end: 20140729
  3. XARELTO [Suspect]
     Active Substance: RIVAROXABAN
     Indication: PULMONARY EMBOLISM
     Dosage: 1 PILL QHS/BEDTIME ORAL
     Route: 048
     Dates: start: 20130629, end: 20140729
  4. XARELTO [Suspect]
     Active Substance: RIVAROXABAN
     Indication: PROPHYLAXIS
     Dosage: 1 PILL QHS/BEDTIME ORAL
     Route: 048
     Dates: start: 20130629, end: 20140729

REACTIONS (2)
  - Deep vein thrombosis [None]
  - Treatment failure [None]

NARRATIVE: CASE EVENT DATE: 20140729
